FAERS Safety Report 23507817 (Version 1)
Quarter: 2024Q1

REPORT INFORMATION
  Report Type: Spontaneous
  Country: US (occurrence: US)
  Receive Date: 20240209
  Receipt Date: 20240209
  Transmission Date: 20240409
  Serious: No
  Sender: FDA-Public Use
  Company Number: US-ELI_LILLY_AND_COMPANY-US202402003536

PATIENT
  Age: 61 Year
  Sex: Female

DRUGS (1)
  1. VERZENIO [Suspect]
     Active Substance: ABEMACICLIB
     Indication: Breast cancer female
     Dosage: 150 MG, BID
     Route: 048
     Dates: start: 20240108, end: 20240122

REACTIONS (18)
  - Pollakiuria [Unknown]
  - Sleep disorder due to a general medical condition [Unknown]
  - Eyelid pain [Unknown]
  - Chills [Unknown]
  - Insomnia [Unknown]
  - Feeding disorder [Unknown]
  - Mobility decreased [Unknown]
  - Sinusitis [Unknown]
  - Malaise [Unknown]
  - Blood creatine increased [Unknown]
  - Quality of life decreased [Unknown]
  - Pyrexia [Unknown]
  - Diarrhoea [Unknown]
  - Decreased appetite [Unknown]
  - Fatigue [Unknown]
  - Platelet count decreased [Unknown]
  - Stomatitis [Unknown]
  - White blood cell count decreased [Unknown]
